FAERS Safety Report 6022804-4 (Version None)
Quarter: 2008Q4

REPORT INFORMATION
  Report Type: 
  Country: None (occurrence: None)
  Receive Date: 20081230
  Receipt Date: 20081217
  Transmission Date: 20090506
  Serious: Yes (Other)
  Sender: FDA-Public Use
  Company Number: ES-ELI_LILLY_AND_COMPANY-ES200807005668

PATIENT
  Age: 37 Year
  Sex: Female

DRUGS (4)
  1. ZYPREXA [Suspect]
     Dosage: 10 MG, UNK
     Route: 048
  2. OXCARBAZEPINE [Concomitant]
     Dosage: 900 MG, DAILY (1/D)
     Dates: end: 20080801
  3. OXCARBAZEPINE [Concomitant]
     Dosage: UNK, UNK
     Dates: start: 20080801
  4. CANNABIS [Concomitant]

REACTIONS (3)
  - ABORTION SPONTANEOUS [None]
  - DRUG EXPOSURE DURING PREGNANCY [None]
  - PREGNANCY [None]
